FAERS Safety Report 11230451 (Version 1)
Quarter: 2015Q2

REPORT INFORMATION
  Report Type: Spontaneous
  Country: BR (occurrence: None)
  Receive Date: 20150629
  Receipt Date: 20150629
  Transmission Date: 20150821
  Serious: Yes (Hospitalization, Other)
  Sender: FDA-Public Use
  Company Number: B0785459A

PATIENT
  Age: 51 Year
  Sex: Female
  Weight: 52.5 kg

DRUGS (5)
  1. MARAVIROC (MARAVIROC) FILM-COATED TABLET [Suspect]
     Active Substance: MARAVIROC
     Indication: HIV INFECTION
     Route: 048
     Dates: start: 20080605
  2. AMITRIPTYLINE [Concomitant]
     Active Substance: AMITRIPTYLINE
  3. DARUNAVIR [Concomitant]
     Active Substance: DARUNAVIR
  4. RITONAVIR. [Concomitant]
     Active Substance: RITONAVIR
  5. RALTEGRAVIR [Concomitant]
     Active Substance: RALTEGRAVIR

REACTIONS (6)
  - Urinary tract infection [None]
  - Wound dehiscence [None]
  - Anaemia [None]
  - Adenocarcinoma of the cervix [None]
  - Haematuria [None]
  - Postoperative wound infection [None]

NARRATIVE: CASE EVENT DATE: 20110922
